FAERS Safety Report 4679752-1 (Version None)
Quarter: 2005Q2

REPORT INFORMATION
  Report Type: 
  Country: None (occurrence: None)
  Receive Date: 20050531
  Receipt Date: 20050520
  Transmission Date: 20051028
  Serious: Yes (Disabling)
  Sender: FDA-Public Use
  Company Number: 05H-078-0299367-00

PATIENT
  Age: 40 Year
  Sex: Male

DRUGS (2)
  1. MEPERIDINE HYDROCHLORIDE INJECTION (MEPERIDINE) [Suspect]
     Indication: DRUG ABUSER
     Dosage: 30-40 ML  INTRAVENOUS
     Route: 042
  2. BUPRENORPHINE [Suspect]
     Indication: DRUG ABUSER
     Dosage: 30-40 ML, INTRAVENOUS
     Route: 042

REACTIONS (4)
  - DEAFNESS NEUROSENSORY [None]
  - DRUG DEPENDENCE [None]
  - OTOTOXICITY [None]
  - TINNITUS [None]
